FAERS Safety Report 6179294-0 (Version None)
Quarter: 2009Q2

REPORT INFORMATION
  Report Type: 
  Country: None (occurrence: None)
  Receive Date: 20090505
  Receipt Date: 20090424
  Transmission Date: 20091009
  Serious: Yes (Other)
  Sender: FDA-Public Use
  Company Number: US-CELGENEUS-163-20785-09032165

PATIENT
  Sex: Male

DRUGS (4)
  1. THALOMID [Suspect]
     Indication: MULTIPLE MYELOMA
     Route: 048
     Dates: start: 20080305, end: 20080327
  2. THALOMID [Suspect]
     Route: 048
     Dates: start: 20071003, end: 20071029
  3. THALOMID [Suspect]
     Route: 048
     Dates: start: 20070901, end: 20071001
  4. LASIX [Concomitant]
     Indication: DRUG USE FOR UNKNOWN INDICATION
     Route: 065

REACTIONS (2)
  - OEDEMA PERIPHERAL [None]
  - PATHOLOGICAL FRACTURE [None]
